FAERS Safety Report 7572504-4 (Version None)
Quarter: 2011Q2

REPORT INFORMATION
  Report Type: 
  Country: None (occurrence: None)
  Receive Date: 20110627
  Receipt Date: 20110614
  Transmission Date: 20111010
  Serious: Yes (Hospitalization, Other)
  Sender: FDA-Public Use
  Company Number: US-BIOGENIDEC-2011BI002087

PATIENT
  Age: 44 Year
  Sex: Male
  Weight: 104 kg

DRUGS (1)
  1. TYSABRI [Suspect]
     Indication: MULTIPLE SCLEROSIS
     Route: 042
     Dates: start: 20080730

REACTIONS (18)
  - DIZZINESS [None]
  - EXCORIATION [None]
  - LACERATION [None]
  - HAND FRACTURE [None]
  - FALL [None]
  - LIP INJURY [None]
  - ANTICONVULSANT DRUG LEVEL INCREASED [None]
  - CONVULSION [None]
  - MULTIPLE SCLEROSIS RELAPSE [None]
  - FOOT FRACTURE [None]
  - BLOOD GLUCOSE DECREASED [None]
  - ATAXIA [None]
  - MEMORY IMPAIRMENT [None]
  - GAIT DISTURBANCE [None]
  - NAIL INJURY [None]
  - DEPRESSION [None]
  - LOSS OF CONSCIOUSNESS [None]
  - STRESS [None]
